FAERS Safety Report 16792319 (Version 2)
Quarter: 2022Q1

REPORT INFORMATION
  Report Type: Spontaneous
  Country: US (occurrence: US)
  Receive Date: 20190910
  Receipt Date: 20220112
  Transmission Date: 20220423
  Serious: No
  Sender: FDA-Public Use
  Company Number: US-AMGEN-USASP2019145493

PATIENT
  Age: 53 Year
  Sex: Male

DRUGS (3)
  1. FILGRASTIM [Suspect]
     Active Substance: FILGRASTIM
     Indication: Aplastic anaemia
     Dosage: UNK
     Route: 065
     Dates: start: 2019
  2. IMATINIB [Concomitant]
     Active Substance: IMATINIB
     Indication: Aplastic anaemia
     Dosage: UNK
     Dates: start: 2019
  3. NILOTINIB [Concomitant]
     Active Substance: NILOTINIB
     Indication: Aplastic anaemia
     Dosage: UNK
     Dates: start: 2019

REACTIONS (2)
  - Drug ineffective for unapproved indication [Unknown]
  - Off label use [Unknown]

NARRATIVE: CASE EVENT DATE: 20190101
